FAERS Safety Report 7379717-5 (Version None)
Quarter: 2011Q1

REPORT INFORMATION
  Report Type: 
  Country: None (occurrence: None)
  Receive Date: 20110318
  Receipt Date: 20110315
  Transmission Date: 20110831
  Serious: Yes (Hospitalization)
  Sender: FDA-Public Use
  Company Number: 013997

PATIENT
  Sex: Female
  Weight: 70.5 kg

DRUGS (3)
  1. CERTOLIZUMAB PEGOL [Suspect]
     Indication: RHEUMATOID ARTHRITIS
     Dosage: 200 MG  1 X 2 WEEKS, SUBCUTANEOUS
     Route: 058
     Dates: start: 20091130, end: 20100322
  2. METHOTREXATE [Concomitant]
  3. REMICADE [Concomitant]

REACTIONS (1)
  - PNEUMONIA [None]
